FAERS Safety Report 8867193 (Version 1)
Quarter: 2012Q4

REPORT INFORMATION
  Report Type: 
  Country: US (occurrence: US)
  Receive Date: 20121025
  Receipt Date: 20121025
  Transmission Date: 20130627
  Serious: No
  Sender: FDA-Public Use
  Company Number: US-AMGEN-USASP2012015507

PATIENT
  Age: 33 Year
  Sex: Female
  Weight: 77.1 kg

DRUGS (3)
  1. ENBREL [Suspect]
     Indication: RHEUMATOID ARTHRITIS
     Dosage: 50 mg, qwk
     Route: 058
  2. NABUMETONE [Concomitant]
     Dosage: 500 mg, UNK
  3. TYLENOL /00020001/ [Concomitant]
     Dosage: 325 mg, UNK

REACTIONS (1)
  - Drug ineffective [Unknown]
